FAERS Safety Report 15739574 (Version 1)
Quarter: 2018Q4

REPORT INFORMATION
  Report Type: Report from Study
  Country: CA (occurrence: CA)
  Receive Date: 20181219
  Receipt Date: 20181219
  Transmission Date: 20190205
  Serious: Yes (Other)
  Sender: FDA-Public Use
  Company Number: CA-HLSUS-2016-CA-000605

PATIENT
  Age: 51 Year
  Sex: Female

DRUGS (5)
  1. FERROUS FUMARATE [Concomitant]
     Active Substance: FERROUS FUMARATE
  2. CLOZARIL [Suspect]
     Active Substance: CLOZAPINE
     Dosage: 25 MG
     Route: 048
     Dates: start: 20141117
  3. DIAZEPAM. [Concomitant]
     Active Substance: DIAZEPAM
  4. FENOFIBRATE. [Concomitant]
     Active Substance: FENOFIBRATE
  5. OLANZAPINE. [Concomitant]
     Active Substance: OLANZAPINE

REACTIONS (3)
  - Electrocardiogram ST-T change [Unknown]
  - Sinus tachycardia [Unknown]
  - Electrocardiogram Q wave abnormal [Unknown]

NARRATIVE: CASE EVENT DATE: 20161031
